FAERS Safety Report 6471393-9 (Version None)
Quarter: 2009Q4

REPORT INFORMATION
  Report Type: 
  Country: None (occurrence: None)
  Receive Date: 20091203
  Receipt Date: 20080205
  Transmission Date: 20100525
  Serious: Yes (Other)
  Sender: FDA-Public Use
  Company Number: US-ELI_LILLY_AND_COMPANY-US200802001081

PATIENT
  Age: 9 Year
  Sex: Female

DRUGS (6)
  1. ZYPREXA [Suspect]
     Indication: HALLUCINATION
     Dosage: 2.5 MG, UNK
     Dates: start: 20030101
  2. ZYPREXA ZYDIS [Suspect]
     Indication: HALLUCINATION
     Dosage: 20 MG, UNK
  3. DEPAKOTE [Concomitant]
  4. FOCALIN [Concomitant]
  5. TOPAMAX [Concomitant]
     Indication: CONVULSION
  6. CLONIDINE [Concomitant]
     Dosage: UNK, EACH EVENING

REACTIONS (3)
  - CEREBRAL ATROPHY [None]
  - CSF TEST ABNORMAL [None]
  - INTELLIGENCE TEST ABNORMAL [None]
